FAERS Safety Report 6012445-7 (Version None)
Quarter: 2008Q4

REPORT INFORMATION
  Report Type: 
  Country: None (occurrence: None)
  Receive Date: 20081218
  Receipt Date: 20081210
  Transmission Date: 20090506
  Serious: Yes (Hospitalization)
  Sender: FDA-Public Use
  Company Number: GB-ELI_LILLY_AND_COMPANY-GB200804004392

PATIENT
  Sex: Female

DRUGS (3)
  1. FORTEO [Suspect]
     Indication: OSTEOPOROSIS
     Dosage: 20 UG, UNKNOWN
     Route: 058
     Dates: start: 20080201, end: 20080701
  2. PENTASA [Concomitant]
     Indication: GASTROINTESTINAL DISORDER
     Dosage: 2 MG, UNK
     Route: 048
  3. BUDESONIDE [Concomitant]
     Indication: GASTROINTESTINAL DISORDER
     Dosage: 9 MG, UNK
     Route: 048

REACTIONS (11)
  - ABDOMINAL DISCOMFORT [None]
  - COLITIS ULCERATIVE [None]
  - CONTUSION [None]
  - DIZZINESS [None]
  - FLATULENCE [None]
  - INJECTION SITE HAEMORRHAGE [None]
  - INJECTION SITE PAIN [None]
  - INJECTION SITE REACTION [None]
  - MUSCLE SPASMS [None]
  - NAUSEA [None]
  - VOMITING [None]
